FAERS Safety Report 8920171 (Version 1)
Quarter: 2012Q4

REPORT INFORMATION
  Report Type: 
  Country: FR (occurrence: FR)
  Receive Date: 20121121
  Receipt Date: 20121121
  Transmission Date: 20130627
  Serious: Yes (Other)
  Sender: FDA-Public Use
  Company Number: FR-B.I. PHARMACEUTICALS,INC./RIDGEFIELD-2012-FF-01622FF

PATIENT
  Age: 57 Year
  Sex: Female

DRUGS (2)
  1. VIRAMUNE [Suspect]
     Indication: HIV INFECTION CDC CATEGORY C3
     Route: 048
     Dates: start: 20120611, end: 20120827
  2. KIVEXA [Concomitant]
     Indication: HIV INFECTION CDC CATEGORY C3
     Dosage: 600mg/300mg
     Route: 048
     Dates: start: 2010

REACTIONS (2)
  - Eczema [Recovered/Resolved]
  - Face oedema [Recovered/Resolved]
